FAERS Safety Report 24810395 (Version 1)
Quarter: 2025Q1

REPORT INFORMATION
  Report Type: Spontaneous
  Country: US (occurrence: US)
  Receive Date: 20250106
  Receipt Date: 20250106
  Transmission Date: 20250408
  Serious: Yes (Other)
  Sender: PFIZER
  Company Number: US-PFIZER INC-202500001083

PATIENT
  Age: 67 Year
  Sex: Female

DRUGS (3)
  1. XELJANZ XR [Suspect]
     Active Substance: TOFACITINIB CITRATE
     Dosage: 11 MG, DAILY
     Route: 048
     Dates: start: 2022
  2. NIGHTTIME SLEEP AID [Concomitant]
  3. D 400 [Concomitant]

REACTIONS (1)
  - Lip neoplasm malignant stage unspecified [Recovered/Resolved]

NARRATIVE: CASE EVENT DATE: 20240601
